FAERS Safety Report 10696956 (Version 1)
Quarter: 2015Q1

REPORT INFORMATION
  Report Type: Spontaneous
  Country: US (occurrence: None)
  Receive Date: 20150107
  Receipt Date: 20150107
  Transmission Date: 20150721
  Serious: Yes (Death)
  Sender: FDA-Public Use
  Company Number: None

PATIENT
  Age: 74 Year
  Sex: Male
  Weight: 136.08 kg

DRUGS (2)
  1. VICTOZA [Suspect]
     Active Substance: LIRAGLUTIDE
     Indication: WEIGHT DECREASED
     Dosage: 3ML PREFILLED PENS, ONCE DAILY, INTO THE MUSCLE
     Dates: start: 20141229, end: 20150104
  2. VICTOZA [Suspect]
     Active Substance: LIRAGLUTIDE
     Indication: BLOOD GLUCOSE INCREASED
     Dosage: 3ML PREFILLED PENS, ONCE DAILY, INTO THE MUSCLE
     Dates: start: 20141229, end: 20150104

REACTIONS (2)
  - Nausea [None]
  - Myocardial infarction [None]

NARRATIVE: CASE EVENT DATE: 20150104
